FAERS Safety Report 4496766-5 (Version None)
Quarter: 2004Q4

REPORT INFORMATION
  Report Type: 
  Country: None (occurrence: None)
  Receive Date: 20041109
  Receipt Date: 20041029
  Transmission Date: 20050328
  Serious: Yes (Death)
  Sender: FDA-Public Use
  Company Number: FR-ROCHE-385018

PATIENT
  Age: 50 Year
  Sex: Male
  Weight: 70 kg

DRUGS (4)
  1. VESANOID [Suspect]
     Route: 048
     Dates: start: 20040728, end: 20040729
  2. VESANOID [Suspect]
     Route: 048
     Dates: start: 20040723, end: 20040727
  3. VESANOID [Suspect]
     Route: 048
     Dates: start: 20040802, end: 20040804
  4. VESANOID [Suspect]
     Route: 048
     Dates: start: 20040810, end: 20040812

REACTIONS (9)
  - COMA [None]
  - DYSPNOEA [None]
  - HAEMODYNAMIC INSTABILITY [None]
  - HYPERCAPNIC ENCEPHALOPATHY [None]
  - LEUKOCYTOSIS [None]
  - PLEURAL EFFUSION [None]
  - PYREXIA [None]
  - RENAL FAILURE [None]
  - RESPIRATORY FAILURE [None]
